FAERS Safety Report 21656000 (Version 1)
Quarter: 2022Q4

REPORT INFORMATION
  Report Type: Spontaneous
  Country: BE (occurrence: BE)
  Receive Date: 20221129
  Receipt Date: 20221129
  Transmission Date: 20230113
  Serious: Yes (Other)
  Sender: FDA-Public Use
  Company Number: BE-SA-2022SA457560

PATIENT
  Age: 41 Year
  Sex: Female

DRUGS (1)
  1. AMIODARONE [Suspect]
     Active Substance: AMIODARONE
     Indication: Tachycardia
     Dosage: 300 MILLIGRAM (LOADING DOSE OF 300 MG)
     Route: 065

REACTIONS (2)
  - Arrhythmia [Recovered/Resolved]
  - Condition aggravated [Recovered/Resolved]
